FAERS Safety Report 12911729 (Version 1)
Quarter: 2016Q4

REPORT INFORMATION
  Report Type: Spontaneous
  Country: CA (occurrence: CA)
  Receive Date: 20161104
  Receipt Date: 20161104
  Transmission Date: 20170207
  Serious: Yes (Death, Other)
  Sender: FDA-Public Use
  Company Number: CA-GLAXOSMITHKLINE-CA2016GSK159035

PATIENT
  Age: 65 Year

DRUGS (8)
  1. LYRICA [Suspect]
     Active Substance: PREGABALIN
     Indication: PRODUCT USED FOR UNKNOWN INDICATION
  2. ADVAIR HFA [Suspect]
     Active Substance: FLUTICASONE PROPIONATE\SALMETEROL XINAFOATE
     Indication: CHRONIC OBSTRUCTIVE PULMONARY DISEASE
     Dosage: UNK
     Route: 055
  3. PREDNISONE. [Concomitant]
     Active Substance: PREDNISONE
     Dosage: 10 MG, UNK
  4. THEOPHYLLINE [Concomitant]
     Active Substance: THEOPHYLLINE ANHYDROUS
     Dosage: 300 MG, UNK
  5. GABAPENTIN. [Suspect]
     Active Substance: GABAPENTIN
     Indication: PRODUCT USED FOR UNKNOWN INDICATION
  6. ATROVENT [Suspect]
     Active Substance: IPRATROPIUM BROMIDE
     Indication: PRODUCT USED FOR UNKNOWN INDICATION
     Dosage: 21MCG/AEM
  7. VENTOLIN [Concomitant]
     Active Substance: ALBUTEROL SULFATE
  8. SALBUTAMOL SULFATE [Concomitant]
     Active Substance: ALBUTEROL SULFATE
     Route: 055

REACTIONS (20)
  - Chronic obstructive pulmonary disease [Fatal]
  - Condition aggravated [Fatal]
  - Musculoskeletal pain [Fatal]
  - Weight decreased [Fatal]
  - Sputum retention [Fatal]
  - Arthralgia [Fatal]
  - Cardiac disorder [Fatal]
  - Cough [Fatal]
  - Drug ineffective [Fatal]
  - Dyspnoea [Fatal]
  - Myocardial infarction [Fatal]
  - Peripheral swelling [Fatal]
  - Productive cough [Fatal]
  - Fluid retention [Fatal]
  - Adverse event [Fatal]
  - Dyspnoea exertional [Fatal]
  - Lung disorder [Fatal]
  - Respiratory disorder [Fatal]
  - Oxygen saturation decreased [Fatal]
  - Weight loss poor [Fatal]
